FAERS Safety Report 9295032 (Version 1)
Quarter: 2013Q2

REPORT INFORMATION
  Report Type: Spontaneous
  Country: US (occurrence: None)
  Receive Date: 20130516
  Receipt Date: 20130516
  Transmission Date: 20140414
  Serious: Yes (Hospitalization)
  Sender: FDA-Public Use
  Company Number: None

PATIENT
  Age: 80 Year
  Sex: Female

DRUGS (2)
  1. XARELTO 20MG JANSSEN [Suspect]
     Indication: THERAPY CESSATION
     Route: 048
     Dates: start: 20130427, end: 20130512
  2. ZYVOX [Suspect]
     Indication: INFECTION
     Route: 048
     Dates: start: 20130428, end: 20130507

REACTIONS (1)
  - Thrombocytopenia [None]
